FAERS Safety Report 6620989-X (Version None)
Quarter: 2010Q1

REPORT INFORMATION
  Report Type: 
  Country: None (occurrence: None)
  Receive Date: 20100309
  Receipt Date: 20100225
  Transmission Date: 20100710
  Serious: Yes (Other)
  Sender: FDA-Public Use
  Company Number: PHHY2010FR11079

PATIENT
  Age: 64 Year
  Sex: Male

DRUGS (1)
  1. AFINITOR [Suspect]
     Indication: RENAL CELL CARCINOMA
     Dosage: 10 MG/DAY
     Route: 048

REACTIONS (5)
  - ERYTHEMA [None]
  - EYELID OEDEMA [None]
  - MUCOSAL INFLAMMATION [None]
  - PRURIGO [None]
  - SKIN EXFOLIATION [None]
